FAERS Safety Report 9833041 (Version 7)
Quarter: 2014Q4

REPORT INFORMATION
  Report Type: Report from Study
  Country: JP (occurrence: JP)
  Receive Date: 20140121
  Receipt Date: 20141120
  Transmission Date: 20150529
  Serious: Yes (Death, Other)
  Sender: FDA-Public Use
  Company Number: JP-PFIZER INC-2014016008

PATIENT
  Age: 70 Year
  Sex: Male
  Weight: 60 kg

DRUGS (11)
  1. ADALAT CC [Concomitant]
     Active Substance: NIFEDIPINE
     Indication: HYPERTENSION
     Dosage: 20 MG, 1X/DAY
     Route: 048
     Dates: start: 20131206, end: 20131230
  2. SENNOSIDE [Concomitant]
     Active Substance: SENNOSIDES
     Dosage: 24 MG, 1X/DAY
     Route: 048
  3. ROCALTROL [Concomitant]
     Active Substance: CALCITRIOL
     Dosage: 0.25 UG, 1X/DAY
     Route: 048
  4. ZYLORIC [Concomitant]
     Active Substance: ALLOPURINOL
     Dosage: UNK, 2X/DAY
     Route: 048
  5. AXITINIB [Suspect]
     Active Substance: AXITINIB
     Indication: METASTATIC RENAL CELL CARCINOMA
     Dosage: 5 MG, 2X/DAY (AFTER MEALS )
     Route: 048
     Dates: start: 20131203
  6. MICARDIS [Concomitant]
     Active Substance: TELMISARTAN
     Indication: HYPERTENSION
     Dosage: 20 MG, 1X/DAY
     Route: 048
     Dates: start: 20131210, end: 20131230
  7. SELBEX [Concomitant]
     Active Substance: TEPRENONE
     Dosage: 50 MG, 3X/DAY
     Route: 048
  8. THYRADIN S [Concomitant]
     Active Substance: LEVOTHYROXINE SODIUM
     Indication: THYROID FUNCTION TEST ABNORMAL
     Dosage: 25 UG, 1X/DAY
     Route: 048
     Dates: end: 20131230
  9. KAYEXALATE [Concomitant]
     Active Substance: SODIUM POLYSTYRENE SULFONATE
     Dosage: 5 G, 1X/DAY
     Route: 048
  10. RENAGEL [Concomitant]
     Active Substance: SEVELAMER HYDROCHLORIDE
     Dosage: 1 G, 3X/DAY
     Route: 048
  11. LANDEL [Concomitant]
     Active Substance: UNSPECIFIED INGREDIENT
     Indication: HYPERTENSION
     Dosage: 20 MG, 2X/DAY
     Route: 048
     Dates: end: 20131230

REACTIONS (1)
  - Death [Fatal]

NARRATIVE: CASE EVENT DATE: 20131230
